FAERS Safety Report 5149428-5 (Version None)
Quarter: 2006Q4

REPORT INFORMATION
  Report Type: 
  Country: None (occurrence: None)
  Receive Date: 20061113
  Receipt Date: 20060110
  Transmission Date: 20070319
  Serious: No
  Sender: FDA-Public Use
  Company Number: 431585

PATIENT
  Age: 65 Year
  Sex: Female

DRUGS (4)
  1. COREG [Suspect]
     Dosage: 25MG TWICE PER DAY
     Route: 048
  2. LASIX [Concomitant]
  3. SPIRONOLACTONE [Concomitant]
  4. MULTIPLE MEDICATIONS [Concomitant]

REACTIONS (6)
  - ALOPECIA [None]
  - DYSPNOEA [None]
  - FATIGUE [None]
  - FLUID RETENTION [None]
  - LETHARGY [None]
  - WEIGHT INCREASED [None]
